FAERS Safety Report 23230360 (Version 4)
Quarter: 2023Q4

REPORT INFORMATION
  Report Type: Report from Study
  Country: US (occurrence: US)
  Receive Date: 20231127
  Receipt Date: 20231213
  Transmission Date: 20240110
  Serious: Yes (Hospitalization, Other)
  Sender: FDA-Public Use
  Company Number: US-SANOFI-01853457

PATIENT
  Age: 55 Year
  Sex: Male

DRUGS (2)
  1. DUPILUMAB [Suspect]
     Active Substance: DUPILUMAB
     Indication: Nasal polyps
     Dosage: 300 MG, QOW
     Route: 058
     Dates: start: 20231113, end: 20231113
  2. DUPILUMAB [Suspect]
     Active Substance: DUPILUMAB
     Indication: Sinusitis

REACTIONS (4)
  - VIth nerve paralysis [Unknown]
  - Diplopia [Unknown]
  - Eye pain [Not Recovered/Not Resolved]
  - Off label use [Unknown]

NARRATIVE: CASE EVENT DATE: 20230101
